FAERS Safety Report 17390253 (Version 1)
Quarter: 2020Q1

REPORT INFORMATION
  Report Type: Spontaneous
  Country: AT (occurrence: AT)
  Receive Date: 20200207
  Receipt Date: 20200207
  Transmission Date: 20200409
  Serious: Yes (Other)
  Sender: FDA-Public Use
  Company Number: AT-US-PROVELL PHARMACEUTICALS LLC-E2B_90074510

PATIENT
  Sex: Female

DRUGS (1)
  1. EUTHYROX NF [Suspect]
     Active Substance: LEVOTHYROXINE SODIUM
     Indication: PRODUCT USED FOR UNKNOWN INDICATION

REACTIONS (5)
  - Dermatitis allergic [Unknown]
  - Dyspnoea [Unknown]
  - Pruritus [Unknown]
  - Reaction to excipient [Unknown]
  - Cough [Unknown]
